FAERS Safety Report 26206952 (Version 1)
Quarter: 2025Q4

REPORT INFORMATION
  Report Type: Report from Study
  Country: CA (occurrence: CA)
  Receive Date: 20251229
  Receipt Date: 20251229
  Transmission Date: 20260117
  Serious: Yes (Other)
  Sender: MERCK KGAA
  Company Number: CA-Merck Healthcare KGaA-2025066535

PATIENT
  Sex: Male

DRUGS (1)
  1. MAVENCLAD [Suspect]
     Active Substance: CLADRIBINE
     Indication: Multiple sclerosis

REACTIONS (5)
  - Pneumonia [Unknown]
  - Mastoid disorder [Unknown]
  - Bone neoplasm [Unknown]
  - Labyrinthitis [Unknown]
  - Balance disorder [Unknown]
